FAERS Safety Report 15839768 (Version 6)
Quarter: 2019Q4

REPORT INFORMATION
  Report Type: Spontaneous
  Country: US (occurrence: US)
  Receive Date: 20190117
  Receipt Date: 20191105
  Transmission Date: 20200122
  Serious: Yes (Hospitalization, Other)
  Sender: FDA-Public Use
  Company Number: US-PFIZER INC-2019021025

PATIENT
  Age: 53 Year
  Sex: Male

DRUGS (1)
  1. LYRICA [Suspect]
     Active Substance: PREGABALIN
     Dosage: 300 MG, 2X/DAY [TAKE 2, 150 MG TWICE A DAY]
     Dates: start: 2013

REACTIONS (14)
  - Suicidal ideation [Unknown]
  - Anxiety [Unknown]
  - Coma [Recovered/Resolved]
  - Near death experience [Unknown]
  - Fear [Unknown]
  - Drug abuser [Unknown]
  - Nervousness [Unknown]
  - Withdrawal syndrome [Unknown]
  - Depression [Unknown]
  - Tremor [Unknown]
  - Memory impairment [Unknown]
  - Neuropathy peripheral [Unknown]
  - Drug dependence [Unknown]
  - Pain [Not Recovered/Not Resolved]

NARRATIVE: CASE EVENT DATE: 2019
